FAERS Safety Report 8607949-4 (Version None)
Quarter: 2012Q3

REPORT INFORMATION
  Report Type: 
  Country: None (occurrence: None)
  Receive Date: 20120821
  Receipt Date: 20120816
  Transmission Date: 20120928
  Serious: Yes (Life-Threatening, Hospitalization)
  Sender: FDA-Public Use
  Company Number: GR-MILLENNIUM PHARMACEUTICALS, INC.-2012-05779

PATIENT

DRUGS (1)
  1. VELCADE [Suspect]
     Indication: NON-SMALL CELL LUNG CANCER
     Dosage: UNK
     Route: 065
     Dates: start: 20120321, end: 20120808

REACTIONS (1)
  - THROMBOCYTOPENIA [None]
